FAERS Safety Report 26146818 (Version 1)
Quarter: 2025Q4

REPORT INFORMATION
  Report Type: Spontaneous
  Country: CN (occurrence: CN)
  Receive Date: 20251211
  Receipt Date: 20251211
  Transmission Date: 20260118
  Serious: Yes (Hospitalization)
  Sender: PFIZER
  Company Number: CN-PFIZER INC-PV202500144698

PATIENT
  Age: 11 Year
  Sex: Male
  Weight: 47 kg

DRUGS (2)
  1. METHOTREXATE SODIUM [Suspect]
     Active Substance: METHOTREXATE SODIUM
     Indication: Acute lymphocytic leukaemia
     Dosage: 70 ML, 1X/DAY
     Route: 041
     Dates: start: 20251124, end: 20251124
  2. SODIUM CHLORIDE [Concomitant]
     Active Substance: SODIUM CHLORIDE
     Indication: Vehicle solution use
     Dosage: 523 ML, 1X/DAY
     Route: 041
     Dates: start: 20251124, end: 20251124

REACTIONS (1)
  - Drug level increased [Recovering/Resolving]

NARRATIVE: CASE EVENT DATE: 20251126
